FAERS Safety Report 20465725 (Version 1)
Quarter: 2022Q1

REPORT INFORMATION
  Report Type: Other
  Country: US (occurrence: None)
  Receive Date: 20220212
  Receipt Date: 20220212
  Transmission Date: 20220423
  Serious: Yes (Hospitalization)
  Sender: FDA-Public Use
  Company Number: US-ROCHE-2577761

PATIENT
  Age: 29 Year
  Sex: Female

DRUGS (1)
  1. OCREVUS [Suspect]
     Active Substance: OCRELIZUMAB
     Indication: Multiple sclerosis
     Dosage: DOT: 09/OCT/2019, 27/MAR/2019, 10/APR/2019, 11/SEP/2019.
     Route: 065
     Dates: start: 20190327

REACTIONS (2)
  - COVID-19 [Unknown]
  - Trigeminal neuralgia [Unknown]

NARRATIVE: CASE EVENT DATE: 20200324
